FAERS Safety Report 7570130-4 (Version None)
Quarter: 2011Q2

REPORT INFORMATION
  Report Type: 
  Country: None (occurrence: None)
  Receive Date: 20110620
  Receipt Date: 20110610
  Transmission Date: 20111010
  Serious: Yes (Hospitalization)
  Sender: FDA-Public Use
  Company Number: ACO_25164_2011

PATIENT
  Age: 59 Year
  Sex: Female

DRUGS (6)
  1. REBIF [Concomitant]
  2. BACLOFEN [Concomitant]
  3. AMPYRA [Suspect]
     Indication: GAIT DISTURBANCE
     Dosage: 10 MG, BID, ORAL
     Route: 048
     Dates: start: 20100901, end: 20110101
  4. TIZANIDINE HCL [Concomitant]
  5. HYDROCHLOROTHIAZIDE [Concomitant]
  6. OXYBUTYNIN (OXYBUTYNIN) [Concomitant]

REACTIONS (6)
  - MULTIPLE SCLEROSIS RELAPSE [None]
  - DYSURIA [None]
  - CELLULITIS [None]
  - OEDEMA PERIPHERAL [None]
  - URINARY TRACT INFECTION [None]
  - BLOOD PRESSURE INCREASED [None]
